FAERS Safety Report 13508386 (Version 1)
Quarter: 2017Q2

REPORT INFORMATION
  Report Type: Spontaneous
  Country: US (occurrence: US)
  Receive Date: 20170503
  Receipt Date: 20170503
  Transmission Date: 20170830
  Serious: No
  Sender: FDA-Public Use
  Company Number: US-MALLINCKRODT-T201602144

PATIENT
  Sex: Female

DRUGS (1)
  1. NALTREXONE [Suspect]
     Active Substance: NALTREXONE
     Indication: PRODUCT USED FOR UNKNOWN INDICATION
     Dosage: 50MG TABS COMPOUNDED TO 1MG/ML SUSPENSION 4.5ML ONCE AT BEDTIME
     Route: 065
     Dates: start: 20160318

REACTIONS (2)
  - Product use issue [Unknown]
  - Uterine disorder [Not Recovered/Not Resolved]
